FAERS Safety Report 11680154 (Version 2)
Quarter: 2015Q4

REPORT INFORMATION
  Report Type: Spontaneous
  Country: US (occurrence: US)
  Receive Date: 20151027
  Receipt Date: 20151104
  Transmission Date: 20160304
  Serious: No
  Sender: FDA-Public Use
  Company Number: US-ELI_LILLY_AND_COMPANY-US201007000384

PATIENT
  Sex: Male

DRUGS (7)
  1. FORTEO [Suspect]
     Active Substance: TERIPARATIDE
     Indication: OSTEOPOROSIS
     Dosage: 20 UG, DAILY (1/D)
     Dates: start: 201002
  2. ANDRODERM [Concomitant]
     Active Substance: TESTOSTERONE
     Indication: BLOOD TESTOSTERONE DECREASED
     Dosage: 2.5 MG, UNK
  3. ANDRODERM [Concomitant]
     Active Substance: TESTOSTERONE
     Dosage: 5 MG, UNK
  4. FORTEO [Suspect]
     Active Substance: TERIPARATIDE
     Dosage: 20 UG, DAILY (1/D)
  5. FORTEO [Suspect]
     Active Substance: TERIPARATIDE
     Dosage: 20 UG, DAILY (1/D)
  6. FORTEO [Suspect]
     Active Substance: TERIPARATIDE
     Dosage: 20 UG, DAILY (1/D)
  7. FORTEO [Suspect]
     Active Substance: TERIPARATIDE
     Dosage: 20 UG, DAILY (1/D)

REACTIONS (15)
  - Confusional state [Unknown]
  - Vitamin D decreased [Unknown]
  - Injection site bruising [Recovered/Resolved]
  - Skin hypertrophy [Not Recovered/Not Resolved]
  - Fear [Unknown]
  - Dry skin [Not Recovered/Not Resolved]
  - Flank pain [Unknown]
  - Gait disturbance [Unknown]
  - Pain of skin [Unknown]
  - Back pain [Unknown]
  - Injection site erythema [Unknown]
  - Injection site pain [Not Recovered/Not Resolved]
  - Pain [Unknown]
  - Arthralgia [Unknown]
  - Burning sensation [Unknown]
